FAERS Safety Report 24274322 (Version 1)
Quarter: 2024Q3

REPORT INFORMATION
  Report Type: Spontaneous
  Country: HU (occurrence: HU)
  Receive Date: 20240902
  Receipt Date: 20240902
  Transmission Date: 20241017
  Serious: Yes (Other)
  Sender: TEVA
  Company Number: None

PATIENT
  Age: 25 Year
  Sex: Male
  Weight: 58 kg

DRUGS (2)
  1. LEVOFLOXACIN [Suspect]
     Active Substance: LEVOFLOXACIN
     Indication: Cystitis
     Route: 048
     Dates: start: 20240711, end: 20240711
  2. OFLOXACIN [Suspect]
     Active Substance: OFLOXACIN
     Indication: Cystitis
     Dosage: TARIVID-RICHTER
     Route: 048
     Dates: start: 20240712, end: 20240713

REACTIONS (5)
  - Headache [Not Recovered/Not Resolved]
  - Dizziness [Not Recovered/Not Resolved]
  - Arthralgia [Not Recovered/Not Resolved]
  - Asthenia [Not Recovered/Not Resolved]
  - Myalgia [Not Recovered/Not Resolved]

NARRATIVE: CASE EVENT DATE: 20240711
